FAERS Safety Report 8506961-3 (Version None)
Quarter: 2012Q3

REPORT INFORMATION
  Report Type: 
  Country: None (occurrence: None)
  Receive Date: 20120712
  Receipt Date: 20120702
  Transmission Date: 20120928
  Serious: Yes (Hospitalization)
  Sender: FDA-Public Use
  Company Number: ES-ELI_LILLY_AND_COMPANY-ES201207000434

PATIENT
  Age: 69 Year
  Sex: Male

DRUGS (2)
  1. CISPLATIN [Concomitant]
     Indication: LUNG NEOPLASM MALIGNANT
     Dosage: 140 MG, UNK
     Dates: start: 20120420, end: 20120420
  2. ALIMTA [Suspect]
     Indication: LUNG NEOPLASM MALIGNANT
     Dosage: 930 MG, OTHER
     Route: 042
     Dates: start: 20120420, end: 20120420

REACTIONS (3)
  - HYPERBILIRUBINAEMIA [None]
  - HEPATITIS [None]
  - COAGULOPATHY [None]
